FAERS Safety Report 5699908-9 (Version None)
Quarter: 2008Q2

REPORT INFORMATION
  Report Type: 
  Country: None (occurrence: None)
  Receive Date: 20080410
  Receipt Date: 20080404
  Transmission Date: 20081010
  Serious: Yes (Other)
  Sender: FDA-Public Use
  Company Number: GB-MERCK-0804GBR00041

PATIENT
  Age: 60 Year
  Sex: Male

DRUGS (4)
  1. PROPECIA [Suspect]
     Indication: ANDROGENETIC ALOPECIA
     Route: 048
     Dates: start: 20070627, end: 20080101
  2. COD LIVER OIL [Concomitant]
     Route: 048
  3. DEVILS CLAW [Concomitant]
     Route: 048
  4. GINKGO [Concomitant]
     Route: 048

REACTIONS (1)
  - RENAL PAIN [None]
